FAERS Safety Report 7947192-5 (Version None)
Quarter: 2011Q4

REPORT INFORMATION
  Report Type: 
  Country: None (occurrence: None)
  Receive Date: 20111129
  Receipt Date: 20111115
  Transmission Date: 20120403
  Serious: Yes (Other)
  Sender: FDA-Public Use
  Company Number: US-ASTRAZENECA-2011SE43754

PATIENT
  Age: 50 Year
  Sex: Male
  Weight: 116.1 kg

DRUGS (1)
  1. SYMBICORT [Suspect]
     Indication: CHRONIC OBSTRUCTIVE PULMONARY DISEASE
     Dosage: 160/4.5 MCG, TWO PUFFS, TWO TIMES A DAY
     Route: 055
     Dates: start: 20110714

REACTIONS (3)
  - LUNG INFILTRATION [None]
  - EMPHYSEMA [None]
  - MYOCARDIAL INFARCTION [None]
